FAERS Safety Report 6420875-4 (Version None)
Quarter: 2009Q4

REPORT INFORMATION
  Report Type: 
  Country: None (occurrence: None)
  Receive Date: 20091030
  Receipt Date: 20091019
  Transmission Date: 20100525
  Serious: Yes (Life-Threatening, Congenital Anomaly)
  Sender: FDA-Public Use
  Company Number: GB-JNJFOC-20090908765

PATIENT

DRUGS (7)
  1. PREZISTA [Suspect]
     Indication: DRUG EXPOSURE DURING PREGNANCY
  2. ETRAVIRINE [Suspect]
     Indication: DRUG EXPOSURE DURING PREGNANCY
     Route: 015
  3. RALTEGRAVIR [Suspect]
     Indication: DRUG EXPOSURE DURING PREGNANCY
     Route: 015
     Dates: start: 20081023, end: 20090221
  4. RITONAVIR [Suspect]
     Route: 015
  5. RITONAVIR [Suspect]
     Indication: DRUG EXPOSURE DURING PREGNANCY
     Route: 015
  6. TIPRANAVIR [Suspect]
     Indication: DRUG EXPOSURE DURING PREGNANCY
     Route: 048
     Dates: end: 20081023
  7. TRUVADA [Suspect]
     Indication: DRUG EXPOSURE DURING PREGNANCY
     Route: 048
     Dates: end: 20081023

REACTIONS (4)
  - ANAL ATRESIA [None]
  - BLADDER AGENESIS [None]
  - CONGENITAL GENITAL MALFORMATION [None]
  - EXOMPHALOS [None]
